FAERS Safety Report 4956389-8 (Version None)
Quarter: 2006Q1

REPORT INFORMATION
  Report Type: 
  Country: None (occurrence: None)
  Receive Date: 20060323
  Receipt Date: 20060313
  Transmission Date: 20060701
  Serious: Yes (Other)
  Sender: FDA-Public Use
  Company Number: 2006035386

PATIENT
  Age: 39 Year
  Sex: Female
  Weight: 120 kg

DRUGS (6)
  1. XALATAN [Suspect]
     Indication: ILL-DEFINED DISORDER
     Dates: start: 20050915
  2. METFORMIN HCL [Suspect]
     Indication: ILL-DEFINED DISORDER
     Dates: start: 20020101
  3. BISOPROLOL FUMARATE [Suspect]
     Indication: ILL-DEFINED DISORDER
  4. COSOPT [Suspect]
     Indication: ILL-DEFINED DISORDER
  5. INSULIN (INSULIN) [Suspect]
     Indication: ILL-DEFINED DISORDER
  6. TIMOLOL MALEATE [Suspect]
     Indication: ILL-DEFINED DISORDER

REACTIONS (2)
  - ABORTION SPONTANEOUS [None]
  - DRUG EXPOSURE DURING PREGNANCY [None]
